FAERS Safety Report 18606822 (Version 1)
Quarter: 2020Q4

REPORT INFORMATION
  Report Type: Report from Study
  Country: ES (occurrence: ES)
  Receive Date: 20201211
  Receipt Date: 20201211
  Transmission Date: 20210114
  Serious: Yes (Other)
  Sender: FDA-Public Use
  Company Number: ES-PFIZER INC-2020482979

PATIENT
  Sex: Female

DRUGS (3)
  1. PACLITAXEL. [Suspect]
     Active Substance: PACLITAXEL
     Indication: LUNG ADENOCARCINOMA
     Dosage: 200 MG/M2, EVERY 3 WEEKS
     Route: 065
     Dates: start: 20170802, end: 20170913
  2. CARBOPLATIN. [Suspect]
     Active Substance: CARBOPLATIN
     Indication: LUNG ADENOCARCINOMA
     Dosage: UNK UNK, EVERY 3 WEEKS (AUC 6 EVERY 3 WEEKS )
     Route: 065
     Dates: start: 20170802, end: 20170913
  3. NIVOLUMAB [Suspect]
     Active Substance: NIVOLUMAB
     Indication: LUNG ADENOCARCINOMA
     Dosage: 360 MG, EVERY 3 WEEKS
     Route: 065
     Dates: start: 20170802, end: 20170913

REACTIONS (4)
  - Prescribed overdose [Unknown]
  - Off label use [Unknown]
  - Pulmonary fibrosis [Unknown]
  - Interstitial lung disease [Unknown]

NARRATIVE: CASE EVENT DATE: 20171020
